FAERS Safety Report 24903661 (Version 1)
Quarter: 2025Q1

REPORT INFORMATION
  Report Type: Spontaneous
  Country: US (occurrence: None)
  Receive Date: 20250129
  Receipt Date: 20250129
  Transmission Date: 20250409
  Serious: No
  Sender: FDA-CTU
  Company Number: None

PATIENT
  Age: 48 Year
  Sex: Male
  Weight: 110.25 kg

DRUGS (4)
  1. COBENFY [Suspect]
     Active Substance: TROSPIUM CHLORIDE\XANOMELINE
     Indication: Schizophrenia
     Dosage: FREQUENCY : TWICE A DAY;?
     Route: 048
     Dates: start: 20241106, end: 20250128
  2. PROZAC [Concomitant]
     Active Substance: FLUOXETINE HYDROCHLORIDE
  3. CLOZARIL [Concomitant]
     Active Substance: CLOZAPINE
  4. CAPLYTA [Concomitant]
     Active Substance: LUMATEPERONE

REACTIONS (9)
  - Dry mouth [None]
  - Dysphagia [None]
  - Dyspnoea [None]
  - Speech disorder [None]
  - Dyspepsia [None]
  - Throat tightness [None]
  - Somnolence [None]
  - Fatigue [None]
  - Tachyphrenia [None]

NARRATIVE: CASE EVENT DATE: 20241106
